FAERS Safety Report 13012510 (Version 1)
Quarter: 2016Q4

REPORT INFORMATION
  Report Type: Report from Study
  Country: US (occurrence: US)
  Receive Date: 20161209
  Receipt Date: 20161209
  Transmission Date: 20170207
  Serious: Yes (Other)
  Sender: FDA-Public Use
  Company Number: US-MALLINCKRODT-T201606254

PATIENT
  Sex: Female
  Weight: 61 kg

DRUGS (1)
  1. REPOSITORY CORTICOTROPIN INJECTION [Suspect]
     Active Substance: CORTICOTROPIN
     Indication: MULTIPLE SCLEROSIS
     Dosage: 1 ML / 80 UNITS/ML, ONCE A DAY FOR 5 DAYS
     Route: 058
     Dates: start: 201502

REACTIONS (8)
  - Dysarthria [Unknown]
  - Agitation [Unknown]
  - Cellulitis [Unknown]
  - Hyperhidrosis [Unknown]
  - Weight increased [Unknown]
  - Injection site pain [Unknown]
  - Hypertension [Unknown]
  - Multiple sclerosis relapse [Unknown]
